FAERS Safety Report 9506323 (Version 1)
Quarter: 2013Q1

REPORT INFORMATION
  Report Type: Spontaneous
  Country: US (occurrence: None)
  Receive Date: 20130301
  Receipt Date: 20130301
  Transmission Date: 20140127
  Serious: Yes (Hospitalization)
  Sender: FDA-Public Use
  Company Number: RB-40923-2012

PATIENT
  Age: 32 Year
  Sex: Female

DRUGS (2)
  1. SUBOXONE [Suspect]
     Indication: DRUG DEPENDENCE
     Route: 060
     Dates: start: 200909, end: 201001
  2. HEROINE [Suspect]
     Indication: DRUG ABUSE
     Dates: start: 201001, end: 20100210

REACTIONS (1)
  - Drug dependence [None]
